FAERS Safety Report 25431014 (Version 2)
Quarter: 2025Q2

REPORT INFORMATION
  Report Type: Report from Study
  Country: US (occurrence: US)
  Receive Date: 20250612
  Receipt Date: 20250623
  Transmission Date: 20250717
  Serious: No
  Sender: MALLINCKRODT
  Company Number: US-MALLINCKRODT-MNK202501743

PATIENT
  Age: 66 Year
  Sex: Female

DRUGS (3)
  1. CORTICOTROPIN [Suspect]
     Active Substance: CORTICOTROPIN
     Indication: Sympathetic ophthalmia
     Dosage: 40 UNITS
     Route: 058
     Dates: start: 20201106, end: 20250511
  2. CORTICOTROPIN [Suspect]
     Active Substance: CORTICOTROPIN
     Indication: Rheumatoid arthritis
  3. REMICADE [Concomitant]
     Active Substance: INFLIXIMAB
     Indication: Arthritis
     Dosage: UNKNOWN

REACTIONS (9)
  - Pulmonary mass [Unknown]
  - Arthralgia [Unknown]
  - Eye disorder [Unknown]
  - Bone pain [Unknown]
  - Aphasia [Unknown]
  - Eye pain [Unknown]
  - Injection site bruising [Unknown]
  - Drug ineffective [Unknown]
  - Expired product administered [Unknown]

NARRATIVE: CASE EVENT DATE: 20250501
